FAERS Safety Report 24740540 (Version 4)
Quarter: 2025Q4

REPORT INFORMATION
  Report Type: Spontaneous
  Country: CA (occurrence: CA)
  Receive Date: 20241217
  Receipt Date: 20251121
  Transmission Date: 20260118
  Serious: Yes (Death, Life-Threatening, Hospitalization, Disabling, Congenital Anomaly, Other)
  Sender: Haleon PLC
  Company Number: CA-002147023-NVSC2023CA000968

PATIENT
  Age: 43 Year
  Sex: Female
  Weight: 68 kg

DRUGS (92)
  1. VOLTAREN [Suspect]
     Active Substance: DICLOFENAC SODIUM
     Indication: Product used for unknown indication
  2. DICLOFENAC POTASSIUM [Suspect]
     Active Substance: DICLOFENAC POTASSIUM
     Indication: Product used for unknown indication
  3. DICLOFENAC SODIUM [Suspect]
     Active Substance: DICLOFENAC SODIUM
     Indication: Product used for unknown indication
  4. COSENTYX [Suspect]
     Active Substance: SECUKINUMAB
     Indication: Psoriatic arthropathy
  5. COSENTYX [Suspect]
     Active Substance: SECUKINUMAB
     Indication: Rheumatoid arthritis
  6. ERELZI [Suspect]
     Active Substance: ETANERCEPT-SZZS
     Indication: Rheumatoid arthritis
     Dosage: SUBCUTANEOUS
  7. ERELZI [Suspect]
     Active Substance: ETANERCEPT-SZZS
  8. AIMOVIG [Suspect]
     Active Substance: ERENUMAB-AOOE
     Indication: Migraine
  9. LEFLUNOMIDE [Suspect]
     Active Substance: LEFLUNOMIDE
     Indication: Rheumatoid arthritis
     Dosage: ORAL
  10. LEFLUNOMIDE [Suspect]
     Active Substance: LEFLUNOMIDE
  11. LEFLUNOMIDE [Suspect]
     Active Substance: LEFLUNOMIDE
  12. LEFLUNOMIDE [Suspect]
     Active Substance: LEFLUNOMIDE
  13. LEFLUNOMIDE [Suspect]
     Active Substance: LEFLUNOMIDE
  14. LEFLUNOMIDE [Suspect]
     Active Substance: LEFLUNOMIDE
     Dosage: ORAL
  15. LEFLUNOMIDE [Suspect]
     Active Substance: LEFLUNOMIDE
     Dosage: ORAL
  16. LEFLUNOMIDE [Suspect]
     Active Substance: LEFLUNOMIDE
  17. LEFLUNOMIDE [Suspect]
     Active Substance: LEFLUNOMIDE
  18. FOLIC ACID [Suspect]
     Active Substance: FOLIC ACID
     Indication: Rheumatoid arthritis
  19. FOLIC ACID [Suspect]
     Active Substance: FOLIC ACID
  20. FOLIC ACID [Suspect]
     Active Substance: FOLIC ACID
  21. FOLIC ACID [Suspect]
     Active Substance: FOLIC ACID
  22. FOLIC ACID [Suspect]
     Active Substance: FOLIC ACID
  23. FOLIC ACID [Suspect]
     Active Substance: FOLIC ACID
  24. FOLIC ACID [Suspect]
     Active Substance: FOLIC ACID
  25. FOLIC ACID [Suspect]
     Active Substance: FOLIC ACID
  26. FOLIC ACID [Suspect]
     Active Substance: FOLIC ACID
  27. FOLIC ACID [Suspect]
     Active Substance: FOLIC ACID
  28. FOLIC ACID [Suspect]
     Active Substance: FOLIC ACID
  29. FOLIC ACID [Suspect]
     Active Substance: FOLIC ACID
  30. FOLIC ACID [Suspect]
     Active Substance: FOLIC ACID
  31. FOLIC ACID [Suspect]
     Active Substance: FOLIC ACID
  32. FOLIC ACID [Suspect]
     Active Substance: FOLIC ACID
  33. FOLIC ACID [Suspect]
     Active Substance: FOLIC ACID
  34. FOLIC ACID [Suspect]
     Active Substance: FOLIC ACID
  35. FOLIC ACID [Suspect]
     Active Substance: FOLIC ACID
  36. CANDESARTAN [Suspect]
     Active Substance: CANDESARTAN
     Indication: Migraine
  37. RITUXIMAB [Suspect]
     Active Substance: RITUXIMAB
     Indication: Rheumatoid arthritis
     Dosage: INTRAVENOUS (NOT OTHERWISE SPECIFIED)
  38. RITUXIMAB [Suspect]
     Active Substance: RITUXIMAB
     Dosage: SUBCUTANEOUS
  39. RITUXIMAB [Suspect]
     Active Substance: RITUXIMAB
     Dosage: INTRAVESICAL
  40. RITUXIMAB [Suspect]
     Active Substance: RITUXIMAB
     Dosage: INTRAVENOUS DRIP
  41. RITUXIMAB [Suspect]
     Active Substance: RITUXIMAB
     Dosage: CONCENTRATE AND SOLVENT FOR SOLUTION FOR INJECTION, INTRAVENOUS (NOT OTHERWISE SPECIFIED)
  42. METHOTREXATE [Suspect]
     Active Substance: METHOTREXATE
     Indication: Rheumatoid arthritis
  43. METHOTREXATE [Suspect]
     Active Substance: METHOTREXATE
  44. METHOTREXATE [Suspect]
     Active Substance: METHOTREXATE
  45. METHOTREXATE [Suspect]
     Active Substance: METHOTREXATE
  46. METHOTREXATE [Suspect]
     Active Substance: METHOTREXATE
  47. METHOTREXATE [Suspect]
     Active Substance: METHOTREXATE
  48. ADALIMUMAB [Suspect]
     Active Substance: ADALIMUMAB
     Indication: Rheumatoid arthritis
  49. ADALIMUMAB [Suspect]
     Active Substance: ADALIMUMAB
     Dosage: SOLUTION SUBCUTANEOUS
  50. ALENDRONATE SODIUM [Suspect]
     Active Substance: ALENDRONATE SODIUM
     Indication: Rheumatoid arthritis
  51. ALENDRONATE SODIUM [Suspect]
     Active Substance: ALENDRONATE SODIUM
     Dosage: ORAL
  52. ALENDRONATE SODIUM [Suspect]
     Active Substance: ALENDRONATE SODIUM
     Dosage: ORAL
  53. ATOMOXETINE [Suspect]
     Active Substance: ATOMOXETINE
     Indication: Migraine
     Dosage: QOD
  54. METHOTREXATE [Suspect]
     Active Substance: METHOTREXATE
     Indication: Rheumatoid arthritis
     Dosage: PARENTERAL
  55. METHOTREXATE [Suspect]
     Active Substance: METHOTREXATE
     Indication: Psoriatic arthropathy
     Dosage: SUBCUTANEOUS
  56. METHOTREXATE [Suspect]
     Active Substance: METHOTREXATE
     Dosage: ORAL
  57. METHOTREXATE [Suspect]
     Active Substance: METHOTREXATE
     Dosage: INTRA-ARTERIAL
  58. METHOTREXATE [Suspect]
     Active Substance: METHOTREXATE
     Dosage: ORAL
  59. METHOTREXATE [Suspect]
     Active Substance: METHOTREXATE
  60. METHOTREXATE [Suspect]
     Active Substance: METHOTREXATE
  61. METHOTREXATE [Suspect]
     Active Substance: METHOTREXATE
     Dosage: ORAL
  62. METHOTREXATE [Suspect]
     Active Substance: METHOTREXATE
     Dosage: ORAL
  63. METHOTREXATE [Suspect]
     Active Substance: METHOTREXATE
     Dosage: ORAL
  64. METHOTREXATE [Suspect]
     Active Substance: METHOTREXATE
     Dosage: ORAL
  65. METHOTREXATE [Suspect]
     Active Substance: METHOTREXATE
     Dosage: ORAL
  66. METHOTREXATE [Suspect]
     Active Substance: METHOTREXATE
  67. METHOTREXATE [Suspect]
     Active Substance: METHOTREXATE
     Dosage: INTRA-ARTERIAL
  68. METHOTREXATE [Suspect]
     Active Substance: METHOTREXATE
     Dosage: INTRA-ARTICULAR
  69. METHOTREXATE [Suspect]
     Active Substance: METHOTREXATE
     Dosage: ORAL
  70. METHOTREXATE [Suspect]
     Active Substance: METHOTREXATE
     Dosage: INTRA-ARTERIAL
  71. METHOTREXATE [Suspect]
     Active Substance: METHOTREXATE
     Dosage: ORAL
  72. METHOTREXATE [Suspect]
     Active Substance: METHOTREXATE
     Dosage: INTRA-ARTERIAL
  73. METHOTREXATE [Suspect]
     Active Substance: METHOTREXATE
     Dosage: SUBCUTANEOUS
  74. METHOTREXATE [Suspect]
     Active Substance: METHOTREXATE
     Dosage: ORAL
  75. METHOTREXATE [Suspect]
     Active Substance: METHOTREXATE
  76. METHOTREXATE [Suspect]
     Active Substance: METHOTREXATE
     Dosage: SUBCUTANEOUS
  77. METHOTREXATE [Suspect]
     Active Substance: METHOTREXATE
     Dosage: ORAL
  78. METHOTREXATE [Suspect]
     Active Substance: METHOTREXATE
     Dosage: ORAL
  79. METHOTREXATE [Suspect]
     Active Substance: METHOTREXATE
     Dosage: ORAL
  80. METHOTREXATE [Suspect]
     Active Substance: METHOTREXATE
     Dosage: ORAL
  81. METHOTREXATE [Suspect]
     Active Substance: METHOTREXATE
  82. METHOTREXATE [Suspect]
     Active Substance: METHOTREXATE
  83. METHOTREXATE [Suspect]
     Active Substance: METHOTREXATE
  84. METHOTREXATE [Suspect]
     Active Substance: METHOTREXATE
  85. ALENDRONIC ACID [Suspect]
     Active Substance: ALENDRONIC ACID
     Indication: Rheumatoid arthritis
  86. ALENDRONIC ACID [Suspect]
     Active Substance: ALENDRONIC ACID
  87. COSENTYX [Suspect]
     Active Substance: SECUKINUMAB
     Indication: Rheumatoid arthritis
  88. COSENTYX [Suspect]
     Active Substance: SECUKINUMAB
     Indication: Psoriatic arthropathy
  89. COSENTYX [Suspect]
     Active Substance: SECUKINUMAB
     Indication: Product used for unknown indication
  90. LEFLUNOMIDE [Suspect]
     Active Substance: LEFLUNOMIDE
     Indication: Rheumatoid arthritis
  91. HYRIMOZ [Concomitant]
     Active Substance: ADALIMUMAB-ADAZ
     Indication: Product used for unknown indication
     Dosage: SOLUTION
  92. COSENTYX [Concomitant]
     Active Substance: SECUKINUMAB
     Indication: Product used for unknown indication

REACTIONS (55)
  - Pancreatitis [Fatal]
  - Medication error [Fatal]
  - Infusion related reaction [Fatal]
  - Treatment noncompliance [Fatal]
  - Arthropathy [Fatal]
  - Intentional product misuse [Fatal]
  - Swollen joint count increased [Fatal]
  - Pustular psoriasis [Fatal]
  - Off label use [Fatal]
  - Osteoporosis [Fatal]
  - Drug ineffective for unapproved indication [Fatal]
  - Dyspnoea [Fatal]
  - Malaise [Fatal]
  - Product use in unapproved indication [Fatal]
  - Porphyria acute [Fatal]
  - Rheumatic fever [Fatal]
  - Rectal haemorrhage [Fatal]
  - Migraine [Fatal]
  - Laryngitis [Fatal]
  - Drug ineffective [Fatal]
  - Weight fluctuation [Fatal]
  - Blepharospasm [Fatal]
  - Subcutaneous drug absorption impaired [Fatal]
  - Treatment failure [Fatal]
  - Laboratory test abnormal [Fatal]
  - Condition aggravated [Fatal]
  - Loss of personal independence in daily activities [Fatal]
  - Rheumatoid factor positive [Fatal]
  - Coeliac disease [Fatal]
  - Drug tolerance decreased [Fatal]
  - Back disorder [Fatal]
  - Memory impairment [Fatal]
  - Ill-defined disorder [Fatal]
  - Taste disorder [Fatal]
  - Fluid retention [Fatal]
  - Decreased appetite [Fatal]
  - Inappropriate schedule of product administration [Fatal]
  - Product quality issue [Fatal]
  - Myositis [Fatal]
  - Epilepsy [Fatal]
  - Ear infection [Fatal]
  - Pain [Fatal]
  - X-ray abnormal [Fatal]
  - Contraindicated product administered [Fatal]
  - C-reactive protein abnormal [Fatal]
  - Gastrointestinal disorder [Fatal]
  - General symptom [Fatal]
  - Therapeutic product effect incomplete [Fatal]
  - Rash vesicular [Fatal]
  - Product use issue [Fatal]
  - Exostosis [Fatal]
  - Visual impairment [Fatal]
  - Crohn^s disease [Fatal]
  - Drug-induced liver injury [Fatal]
  - Gastrooesophageal reflux disease [Fatal]
